FAERS Safety Report 5821266-7 (Version None)
Quarter: 2008Q3

REPORT INFORMATION
  Report Type: 
  Country: None (occurrence: None)
  Receive Date: 20080724
  Receipt Date: 20080715
  Transmission Date: 20090109
  Serious: Yes (Other)
  Sender: FDA-Public Use
  Company Number: HQWYE382213JUN05

PATIENT
  Sex: Male
  Weight: 76.73 kg

DRUGS (9)
  1. RAPAMUNE [Suspect]
     Indication: PROPHYLAXIS AGAINST TRANSPLANT REJECTION
     Route: 048
     Dates: start: 20020416, end: 20050609
  2. MULTI-VITAMINS [Concomitant]
     Dosage: UNSPECIFIED
     Dates: start: 20010226
  3. ATORVASTATIN CALCIUM [Concomitant]
     Indication: HYPERLIPIDAEMIA
     Dates: start: 20040106
  4. CALCIUM CARBONATE [Concomitant]
     Dosage: UNSPECIFIED
     Dates: start: 20010115
  5. ATENOLOL [Concomitant]
     Indication: HYPERTENSION
     Dates: start: 20021007
  6. IRBESARTAN [Concomitant]
     Indication: HYPERTENSION
     Dates: start: 20011101
  7. ASPIRIN [Concomitant]
     Dosage: UNSPECIFIED
     Dates: start: 20030402, end: 20050202
  8. ASPIRIN [Concomitant]
     Dosage: UNSPECIFED
     Dates: start: 20050210
  9. BACTRIM DS [Concomitant]
     Dosage: UNSPECIFIED
     Dates: start: 20010116

REACTIONS (1)
  - NEUROENDOCRINE CARCINOMA OF THE SKIN [None]
